FAERS Safety Report 8595264-7 (Version None)
Quarter: 2012Q3

REPORT INFORMATION
  Report Type: 
  Country: None (occurrence: None)
  Receive Date: 20120815
  Receipt Date: 20120809
  Transmission Date: 20120928
  Serious: Yes (Other)
  Sender: FDA-Public Use
  Company Number: GB-PFIZER INC-2012194287

PATIENT
  Age: 72 Year
  Sex: Female

DRUGS (7)
  1. LORAZEPAM [Suspect]
     Dosage: UNK
  2. BETHANIDINE SULFATE TABLOID [Suspect]
     Dosage: UNK
  3. COTRIM [Suspect]
     Dosage: UNK
  4. IBUPROFEN [Suspect]
     Dosage: UNK
  5. AMITRIPTYLINE HCL [Suspect]
     Dosage: UNK
  6. CYCLOPENTHIAZIDE [Suspect]
     Dosage: UNK
  7. CARBOCISTEINE [Suspect]
     Dosage: UNK

REACTIONS (1)
  - TUBULOINTERSTITIAL NEPHRITIS [None]
